FAERS Safety Report 7071835-4 (Version None)
Quarter: 2010Q4

REPORT INFORMATION
  Report Type: 
  Country: None (occurrence: None)
  Receive Date: 20101029
  Receipt Date: 20101019
  Transmission Date: 20110411
  Serious: Yes (Other)
  Sender: FDA-Public Use
  Company Number: PHHY2010JP68863

PATIENT
  Age: 59 Year
  Sex: Female

DRUGS (3)
  1. ZOMETA [Suspect]
     Indication: MULTIPLE MYELOMA
     Dosage: UNK
     Route: 041
  2. ANTINEOPLASTIC AGENTS [Concomitant]
  3. STEROIDS NOS [Concomitant]

REACTIONS (1)
  - PERIODONTITIS [None]
